FAERS Safety Report 4913380-5 (Version None)
Quarter: 2006Q1

REPORT INFORMATION
  Report Type: 
  Country: None (occurrence: None)
  Receive Date: 20060210
  Receipt Date: 20060205
  Transmission Date: 20060701
  Serious: Yes (Hospitalization)
  Sender: FDA-Public Use
  Company Number: D0048670A

PATIENT
  Age: 27 Year
  Sex: Male

DRUGS (3)
  1. VENTOLIN [Suspect]
     Dosage: 4 MG, SINGLE DOSE; ORAL
     Route: 048
     Dates: start: 20060205, end: 20060205
  2. ACETAMINOPHEN [Suspect]
     Dosage: 500 MG, SINGLE DOSE; ORAL
     Route: 048
     Dates: start: 20060205, end: 20060205
  3. ETHANOL (FORMULATION UNKNOWN) (ALCOHOL) [Suspect]
     Dosage: ORAL
     Route: 048
     Dates: start: 20060205, end: 20060205

REACTIONS (3)
  - MULTIPLE DRUG OVERDOSE INTENTIONAL [None]
  - SOMNOLENCE [None]
  - SUICIDE ATTEMPT [None]
